FAERS Safety Report 5024574-5 (Version None)
Quarter: 2006Q2

REPORT INFORMATION
  Report Type: 
  Country: None (occurrence: None)
  Receive Date: 20060426
  Receipt Date: 20060201
  Transmission Date: 20061013
  Serious: Yes (Other)
  Sender: FDA-Public Use
  Company Number: 2005172966

PATIENT
  Sex: Male

DRUGS (3)
  1. LYRICA [Suspect]
     Indication: SPINAL DISORDER
     Dosage: 150 MG (75 MG,2 IN 1 D)
  2. VICODIN [Concomitant]
  3. FENTANYL [Concomitant]

REACTIONS (1)
  - NARCOLEPSY [None]
